FAERS Safety Report 23840751 (Version 1)
Quarter: 2024Q2

REPORT INFORMATION
  Report Type: Spontaneous
  Country: CZ (occurrence: CZ)
  Receive Date: 20240510
  Receipt Date: 20240510
  Transmission Date: 20240715
  Serious: Yes (Other)
  Sender: FDA-Public Use
  Company Number: CZ-Accord-416586

PATIENT
  Age: 7 Decade
  Sex: Female

DRUGS (45)
  1. CISPLATIN [Suspect]
     Active Substance: CISPLATIN
     Indication: Diffuse large B-cell lymphoma stage IV
     Dates: start: 202302, end: 2023
  2. ETOPOSIDE [Suspect]
     Active Substance: ETOPOSIDE
     Indication: Diffuse large B-cell lymphoma stage IV
     Dates: start: 202302, end: 2023
  3. CYTARABINE [Suspect]
     Active Substance: CYTARABINE
     Indication: Diffuse large B-cell lymphoma stage IV
     Dates: start: 202302, end: 2023
  4. RITUXIMAB [Suspect]
     Active Substance: RITUXIMAB
     Indication: Diffuse large B-cell lymphoma stage IV
     Dates: start: 202302, end: 2023
  5. DEXAMETHASONE [Suspect]
     Active Substance: DEXAMETHASONE
     Indication: Diffuse large B-cell lymphoma stage IV
     Dates: start: 202302, end: 2023
  6. CISPLATIN [Suspect]
     Active Substance: CISPLATIN
     Indication: Diffuse large B-cell lymphoma recurrent
     Dates: start: 202302, end: 2023
  7. CISPLATIN [Suspect]
     Active Substance: CISPLATIN
     Indication: Metastases to lymph nodes
     Dates: start: 202302, end: 2023
  8. CISPLATIN [Suspect]
     Active Substance: CISPLATIN
     Indication: Metastases to abdominal wall
     Dates: start: 202302, end: 2023
  9. CISPLATIN [Suspect]
     Active Substance: CISPLATIN
     Indication: Metastases to spleen
     Dates: start: 202302, end: 2023
  10. CISPLATIN [Suspect]
     Active Substance: CISPLATIN
     Indication: Metastases to liver
     Dates: start: 202302, end: 2023
  11. CISPLATIN [Suspect]
     Active Substance: CISPLATIN
     Indication: Metastases to tonsils
     Dates: start: 202302, end: 2023
  12. CISPLATIN [Suspect]
     Active Substance: CISPLATIN
     Indication: Metastases to muscle
     Dates: start: 202302, end: 2023
  13. CISPLATIN [Suspect]
     Active Substance: CISPLATIN
     Indication: Metastases to pharynx
     Dates: start: 202302, end: 2023
  14. ETOPOSIDE [Suspect]
     Active Substance: ETOPOSIDE
     Indication: Metastases to pharynx
     Dates: start: 202302, end: 2023
  15. ETOPOSIDE [Suspect]
     Active Substance: ETOPOSIDE
     Indication: Metastases to lymph nodes
     Dates: start: 202302, end: 2023
  16. ETOPOSIDE [Suspect]
     Active Substance: ETOPOSIDE
     Indication: Diffuse large B-cell lymphoma recurrent
     Dates: start: 202302, end: 2023
  17. ETOPOSIDE [Suspect]
     Active Substance: ETOPOSIDE
     Indication: Metastases to tonsils
     Dates: start: 202302, end: 2023
  18. ETOPOSIDE [Suspect]
     Active Substance: ETOPOSIDE
     Indication: Metastases to liver
     Dates: start: 202302, end: 2023
  19. ETOPOSIDE [Suspect]
     Active Substance: ETOPOSIDE
     Indication: Metastases to muscle
     Dates: start: 202302, end: 2023
  20. ETOPOSIDE [Suspect]
     Active Substance: ETOPOSIDE
     Indication: Metastases to abdominal wall
     Dates: start: 202302, end: 2023
  21. ETOPOSIDE [Suspect]
     Active Substance: ETOPOSIDE
     Indication: Metastases to spleen
     Dates: start: 202302, end: 2023
  22. CYTARABINE [Suspect]
     Active Substance: CYTARABINE
     Indication: Metastases to muscle
     Dates: start: 202302, end: 2023
  23. CYTARABINE [Suspect]
     Active Substance: CYTARABINE
     Indication: Metastases to liver
     Dates: start: 202302, end: 2023
  24. CYTARABINE [Suspect]
     Active Substance: CYTARABINE
     Indication: Metastases to pharynx
     Dates: start: 202302, end: 2023
  25. CYTARABINE [Suspect]
     Active Substance: CYTARABINE
     Indication: Diffuse large B-cell lymphoma recurrent
     Dates: start: 202302, end: 2023
  26. CYTARABINE [Suspect]
     Active Substance: CYTARABINE
     Indication: Metastases to tonsils
     Dates: start: 202302, end: 2023
  27. CYTARABINE [Suspect]
     Active Substance: CYTARABINE
     Indication: Metastases to lymph nodes
     Dates: start: 202302, end: 2023
  28. CYTARABINE [Suspect]
     Active Substance: CYTARABINE
     Indication: Metastases to spleen
     Dates: start: 202302, end: 2023
  29. CYTARABINE [Suspect]
     Active Substance: CYTARABINE
     Indication: Metastases to abdominal wall
     Dates: start: 202302, end: 2023
  30. RITUXIMAB [Suspect]
     Active Substance: RITUXIMAB
     Indication: Metastases to pharynx
     Dates: start: 202302, end: 2023
  31. RITUXIMAB [Suspect]
     Active Substance: RITUXIMAB
     Indication: Metastases to abdominal wall
     Dates: start: 202302, end: 2023
  32. RITUXIMAB [Suspect]
     Active Substance: RITUXIMAB
     Indication: Metastases to muscle
     Dates: start: 202302, end: 2023
  33. RITUXIMAB [Suspect]
     Active Substance: RITUXIMAB
     Indication: Metastases to lymph nodes
     Dates: start: 202302, end: 2023
  34. RITUXIMAB [Suspect]
     Active Substance: RITUXIMAB
     Indication: Metastases to spleen
     Dates: start: 202302, end: 2023
  35. RITUXIMAB [Suspect]
     Active Substance: RITUXIMAB
     Indication: Metastases to tonsils
     Dates: start: 202302, end: 2023
  36. RITUXIMAB [Suspect]
     Active Substance: RITUXIMAB
     Indication: Metastases to liver
     Dates: start: 202302, end: 2023
  37. RITUXIMAB [Suspect]
     Active Substance: RITUXIMAB
     Indication: Diffuse large B-cell lymphoma recurrent
     Dates: start: 202302, end: 2023
  38. DEXAMETHASONE [Suspect]
     Active Substance: DEXAMETHASONE
     Indication: Diffuse large B-cell lymphoma recurrent
     Dates: start: 202302, end: 2023
  39. DEXAMETHASONE [Suspect]
     Active Substance: DEXAMETHASONE
     Indication: Metastases to liver
     Dates: start: 202302, end: 2023
  40. DEXAMETHASONE [Suspect]
     Active Substance: DEXAMETHASONE
     Indication: Metastases to tonsils
     Dates: start: 202302, end: 2023
  41. DEXAMETHASONE [Suspect]
     Active Substance: DEXAMETHASONE
     Indication: Metastases to spleen
     Dates: start: 202302, end: 2023
  42. DEXAMETHASONE [Suspect]
     Active Substance: DEXAMETHASONE
     Indication: Metastases to lymph nodes
     Dates: start: 202302, end: 2023
  43. DEXAMETHASONE [Suspect]
     Active Substance: DEXAMETHASONE
     Indication: Metastases to muscle
     Dates: start: 202302, end: 2023
  44. DEXAMETHASONE [Suspect]
     Active Substance: DEXAMETHASONE
     Indication: Metastases to abdominal wall
     Dates: start: 202302, end: 2023
  45. DEXAMETHASONE [Suspect]
     Active Substance: DEXAMETHASONE
     Indication: Metastases to pharynx
     Dates: start: 202302, end: 2023

REACTIONS (4)
  - Drug ineffective [Unknown]
  - Off label use [Unknown]
  - Gastroenteritis clostridial [Unknown]
  - Circulatory collapse [Unknown]

NARRATIVE: CASE EVENT DATE: 20230101
